FAERS Safety Report 5256453-2 (Version None)
Quarter: 2007Q1

REPORT INFORMATION
  Report Type: 
  Country: None (occurrence: None)
  Receive Date: 20070306
  Receipt Date: 20070221
  Transmission Date: 20070707
  Serious: No
  Sender: FDA-Public Use
  Company Number: FR-ELI_LILLY_AND_COMPANY-FR200702004802

PATIENT
  Age: 26 Year
  Sex: Male

DRUGS (3)
  1. ZYPREXA [Suspect]
     Indication: SCHIZOPHRENIA
     Dosage: 10 MG, DAILY (1/D)
     Route: 048
     Dates: start: 20070101
  2. ZYPREXA [Suspect]
     Dosage: 25 MG, DAILY (1/D)
     Route: 048
  3. CLONAZEPAM [Concomitant]
     Route: 048

REACTIONS (2)
  - NEUTROPHIL COUNT DECREASED [None]
  - PRESCRIBED OVERDOSE [None]
